FAERS Safety Report 5645913-8 (Version None)
Quarter: 2008Q1

REPORT INFORMATION
  Report Type: 
  Country: None (occurrence: None)
  Receive Date: 20080229
  Receipt Date: 20080221
  Transmission Date: 20080703
  Serious: Yes (Other)
  Sender: FDA-Public Use
  Company Number: RO-PFIZER INC-2008014694

PATIENT
  Sex: Female
  Weight: 62 kg

DRUGS (5)
  1. SORTIS [Suspect]
     Indication: DYSLIPIDAEMIA
     Route: 048
     Dates: start: 20080107, end: 20080204
  2. SORTIS [Suspect]
     Indication: HYPERLIPIDAEMIA
  3. SORTIS [Suspect]
     Indication: HYPERCHOLESTEROLAEMIA
  4. PANTOPRAZOLE [Concomitant]
  5. REVALID [Concomitant]

REACTIONS (1)
  - DERMATITIS ALLERGIC [None]
